FAERS Safety Report 7567950-9 (Version None)
Quarter: 2011Q2

REPORT INFORMATION
  Report Type: 
  Country: None (occurrence: None)
  Receive Date: 20110623
  Receipt Date: 20110615
  Transmission Date: 20111010
  Serious: Yes (Other)
  Sender: FDA-Public Use
  Company Number: BR-BRISTOL-MYERS SQUIBB COMPANY-15817885

PATIENT
  Age: 46 Year
  Sex: Female
  Weight: 106 kg

DRUGS (4)
  1. CYMBALTA [Concomitant]
  2. SIMVASTATIN [Concomitant]
  3. ONGLYZA [Suspect]
     Indication: TYPE 2 DIABETES MELLITUS
     Dosage: 1DF=1 TABLET
     Route: 048
     Dates: start: 20110501
  4. INSULIN [Concomitant]

REACTIONS (1)
  - LABYRINTHITIS [None]
